FAERS Safety Report 9410160 (Version 5)
Quarter: 2014Q3

REPORT INFORMATION
  Report Type: Report from Study
  Country: US (occurrence: US)
  Receive Date: 20130719
  Receipt Date: 20140703
  Transmission Date: 20150326
  Serious: Yes (Hospitalization)
  Sender: FDA-Public Use
  Company Number: US-ALEXION PHARMACEUTICALS INC.-A201301602

PATIENT

DRUGS (20)
  1. SOLIRIS [Suspect]
     Active Substance: ECULIZUMAB
     Dosage: UNK
     Route: 042
     Dates: start: 20130815, end: 20130815
  2. AMLODIPINE [Concomitant]
     Active Substance: AMLODIPINE BESYLATE
     Indication: PRODUCT USED FOR UNKNOWN INDICATION
     Dosage: 3.5 MG, BID
     Route: 048
  3. SOLIRIS [Suspect]
     Active Substance: ECULIZUMAB
     Dosage: 300 MG, SINGLE
     Route: 042
     Dates: start: 20130619, end: 20130619
  4. SOLIRIS [Suspect]
     Active Substance: ECULIZUMAB
     Dosage: UNK, SINGLE
     Route: 042
     Dates: start: 20130801, end: 20130801
  5. EPINEPHRINE. [Concomitant]
     Active Substance: EPINEPHRINE
     Indication: PRODUCT USED FOR UNKNOWN INDICATION
     Dosage: 1 MG, UNK
     Route: 042
  6. KAYEXALATE [Concomitant]
     Active Substance: SODIUM POLYSTYRENE SULFONATE
     Indication: BLOOD POTASSIUM INCREASED
     Dosage: 5 ML, QD
     Route: 048
  7. ANTIHYPERTENSIVES [Concomitant]
     Active Substance: UNSPECIFIED INGREDIENT
     Indication: HYPERTENSION
     Dosage: UNK
     Route: 065
  8. ZEMPLAR [Concomitant]
     Active Substance: PARICALCITOL
     Indication: PRODUCT USED FOR UNKNOWN INDICATION
     Dosage: UNK
     Route: 065
  9. PROTEIN SUPPLEMENTS [Concomitant]
     Active Substance: PROTEIN
     Indication: NUTRITIONAL SUPPLEMENTATION
     Dosage: 18 G, QD
     Route: 048
  10. ALBUTEROL SULFATE. [Concomitant]
     Active Substance: ALBUTEROL SULFATE
     Indication: PRODUCT USED FOR UNKNOWN INDICATION
     Dosage: 0.5 ML, PRN, INHALATION
  11. EPOGEN [Concomitant]
     Active Substance: ERYTHROPOIETIN
     Indication: PRODUCT USED FOR UNKNOWN INDICATION
     Dosage: UNK
     Route: 065
  12. HEPARIN [Concomitant]
     Active Substance: HEPARIN SODIUM
     Indication: ANTICOAGULANT THERAPY
     Dosage: 50 UNITS, UNK
     Route: 042
  13. SODIUM CHLORIDE. [Concomitant]
     Active Substance: SODIUM CHLORIDE
     Indication: ELECTROLYTE IMBALANCE
     Route: 042
  14. SOLIRIS [Suspect]
     Active Substance: ECULIZUMAB
     Dosage: UNK, SINGLE
     Route: 042
     Dates: start: 20130718, end: 20130718
  15. SOLIRIS [Suspect]
     Active Substance: ECULIZUMAB
     Dosage: 300 MG, Q2W
     Route: 042
  16. PHOSPHATE BINDERS [Concomitant]
     Indication: PRODUCT USED FOR UNKNOWN INDICATION
     Dosage: UNK
     Route: 065
  17. SOLIRIS [Suspect]
     Active Substance: ECULIZUMAB
     Indication: HAEMOLYTIC URAEMIC SYNDROME
     Dosage: 600 MG, SINGLE
     Route: 042
     Dates: start: 20130528, end: 20130528
  18. SOLIRIS [Suspect]
     Active Substance: ECULIZUMAB
     Dosage: 300 MG, SINGLE
     Route: 042
     Dates: start: 20130605, end: 20130605
  19. DIPHENHYDRAMINE [Concomitant]
     Active Substance: DIPHENHYDRAMINE
     Indication: PRURITUS
     Dosage: 50 MG, UNK
     Route: 042
  20. CALCIUM CARBONATE. [Concomitant]
     Active Substance: CALCIUM CARBONATE
     Indication: SUPPLEMENTATION THERAPY
     Dosage: 12 ML, TID
     Route: 048

REACTIONS (7)
  - Blood lactate dehydrogenase increased [Not Recovered/Not Resolved]
  - Haptoglobin decreased [Not Recovered/Not Resolved]
  - Complement factor C3 decreased [Unknown]
  - Device related sepsis [Not Recovered/Not Resolved]
  - Haemoglobin decreased [Unknown]
  - Platelet count decreased [Not Recovered/Not Resolved]
  - Nasopharyngitis [Recovered/Resolved]

NARRATIVE: CASE EVENT DATE: 20130627
